FAERS Safety Report 16685060 (Version 1)
Quarter: 2019Q3

REPORT INFORMATION
  Report Type: Spontaneous
  Country: PK (occurrence: PK)
  Receive Date: 20190808
  Receipt Date: 20190808
  Transmission Date: 20191004
  Serious: Yes (Other)
  Sender: FDA-Public Use
  Company Number: PK-BEXIMCO-2019BEX00034

PATIENT
  Age: 22 Year
  Sex: Female

DRUGS (2)
  1. PAIN RELIEVER [Concomitant]
     Route: 065
  2. METFORMIN HYDROCHLORIDE. [Suspect]
     Active Substance: METFORMIN HYDROCHLORIDE
     Indication: POLYCYSTIC OVARIES
     Dosage: 500 MG, 2X/DAY
     Route: 065

REACTIONS (1)
  - Rheumatic fever [Recovering/Resolving]
